FAERS Safety Report 4600816-2 (Version None)
Quarter: 2005Q1

REPORT INFORMATION
  Report Type: 
  Country: None (occurrence: None)
  Receive Date: 20050304
  Receipt Date: 20050221
  Transmission Date: 20050727
  Serious: Yes (Hospitalization)
  Sender: FDA-Public Use
  Company Number: 2005008170

PATIENT
  Age: 92 Year
  Sex: Female
  Weight: 77 kg

DRUGS (4)
  1. CELEBREX [Suspect]
     Indication: OSTEOARTHRITIS
     Dosage: 200 MG (200 MG , 1 IN 1 D), ORAL
     Route: 048
     Dates: start: 20030107, end: 20041201
  2. AMILODIPINE BESILATE (AMLODIPINE BESILATE) [Concomitant]
  3. ASPIRIN [Concomitant]
  4. CATOPRIL (CATOPRIL) [Concomitant]

REACTIONS (3)
  - CEREBRAL INFARCTION [None]
  - RASH [None]
  - TRANSIENT ISCHAEMIC ATTACK [None]
